FAERS Safety Report 18938319 (Version 2)
Quarter: 2021Q1

REPORT INFORMATION
  Report Type: Spontaneous
  Country: US (occurrence: US)
  Receive Date: 20210225
  Receipt Date: 20210303
  Transmission Date: 20210420
  Serious: Yes (Hospitalization, Other)
  Sender: FDA-Public Use
  Company Number: US-PFIZER INC-2021195040

PATIENT
  Age: 55 Year
  Sex: Female

DRUGS (3)
  1. METHOTREXATE SODIUM. [Suspect]
     Active Substance: METHOTREXATE SODIUM
     Indication: SYSTEMIC LUPUS ERYTHEMATOSUS
     Dosage: 15 MG, WEEKLY
  2. METHOTREXATE SODIUM. [Suspect]
     Active Substance: METHOTREXATE SODIUM
     Indication: SJOGREN^S SYNDROME
  3. BELIMUMAB [Suspect]
     Active Substance: BELIMUMAB
     Indication: ARTHRITIS
     Dosage: UNK
     Route: 042

REACTIONS (5)
  - Cytomegalovirus infection reactivation [Unknown]
  - Off label use [Unknown]
  - Cytomegalovirus hepatitis [Unknown]
  - Immunosuppression [Unknown]
  - Cytomegalovirus enteritis [Unknown]
